FAERS Safety Report 5910994-0 (Version None)
Quarter: 2008Q4

REPORT INFORMATION
  Report Type: 
  Country: None (occurrence: None)
  Receive Date: 20081007
  Receipt Date: 20081001
  Transmission Date: 20090506
  Serious: Yes (Hospitalization, Other)
  Sender: FDA-Public Use
  Company Number: US-ALLERGAN-0809653US

PATIENT
  Sex: Male

DRUGS (9)
  1. BOTOX [Suspect]
     Indication: MUSCLE SPASTICITY
     Dosage: 570 UNITS, SINGLE
     Route: 030
     Dates: start: 20080721, end: 20080721
  2. BOTOX [Suspect]
     Indication: MULTIPLE SCLEROSIS
     Dosage: UNK, SINGLE
     Route: 030
     Dates: start: 20080601, end: 20080601
  3. FLOMAX [Concomitant]
  4. BACLOFEN [Concomitant]
  5. PAROXETINE HCL [Concomitant]
  6. AVAPRO [Concomitant]
  7. ASPIRIN [Concomitant]
  8. AVONEX [Concomitant]
  9. VITAMINS [Concomitant]

REACTIONS (2)
  - MULTIPLE SCLEROSIS [None]
  - UROSEPSIS [None]
